FAERS Safety Report 8583939-5 (Version None)
Quarter: 2012Q3

REPORT INFORMATION
  Report Type: 
  Country: None (occurrence: None)
  Receive Date: 20120810
  Receipt Date: 20120803
  Transmission Date: 20120928
  Serious: Yes (Hospitalization)
  Sender: FDA-Public Use
  Company Number: US-009507513-1208USA002347

PATIENT

DRUGS (6)
  1. VORINOSTAT [Suspect]
     Indication: DIFFUSE LARGE B-CELL LYMPHOMA
     Dosage: 400 MG, QD ON DAYS 1-14
     Route: 048
     Dates: start: 20120515
  2. VORINOSTAT [Suspect]
     Dosage: 300 MG, QD ON DAYS 1-14
     Route: 048
     Dates: start: 20120725, end: 20120801
  3. VORINOSTAT [Suspect]
     Dosage: 300 MG, QD ON DAYS 1-14
     Route: 048
  4. ALISERTIB [Suspect]
     Dosage: 20 MG, BID ON DAYS 1-7
     Route: 048
  5. ALISERTIB [Suspect]
     Indication: DIFFUSE LARGE B-CELL LYMPHOMA
     Dosage: 30 MG, BID ON DAYS 1-7
     Route: 048
     Dates: start: 20120515
  6. ALISERTIB [Suspect]
     Dosage: 20 MG, BID ON DAYS 1-7
     Route: 048
     Dates: start: 20120725, end: 20120801

REACTIONS (1)
  - FEBRILE NEUTROPENIA [None]
